FAERS Safety Report 9370797 (Version 1)
Quarter: 2013Q2

REPORT INFORMATION
  Report Type: Spontaneous
  Country: CA (occurrence: CA)
  Receive Date: 20130626
  Receipt Date: 20130626
  Transmission Date: 20140414
  Serious: Yes (Other)
  Sender: FDA-Public Use
  Company Number: CA-BMSGILMSD-2013-0076697

PATIENT
  Age: 31 Year
  Sex: Female

DRUGS (4)
  1. ATRIPLA [Suspect]
     Indication: HIV INFECTION
     Dosage: 1 DF, QD
     Route: 048
     Dates: start: 20110808
  2. FERROUS FUMARATE [Concomitant]
     Indication: ANAEMIA
     Dosage: UNK
     Dates: start: 20120912, end: 20130201
  3. MATERNA                            /02266601/ [Concomitant]
     Dosage: UNK
     Dates: start: 20120912, end: 20130201
  4. ATAZANAVIR [Concomitant]
     Indication: HIV INFECTION
     Dosage: UNK
     Route: 042
     Dates: start: 20130201, end: 20130201

REACTIONS (2)
  - Premature delivery [Recovered/Resolved]
  - Oligohydramnios [Unknown]
